FAERS Safety Report 13961462 (Version 1)
Quarter: 2017Q3

REPORT INFORMATION
  Report Type: Spontaneous
  Country: JP (occurrence: JP)
  Receive Date: 20170912
  Receipt Date: 20170912
  Transmission Date: 20171128
  Serious: Yes (Other)
  Sender: FDA-Public Use
  Company Number: JP-JNJFOC-20170907629

PATIENT
  Age: 63 Year
  Sex: Male

DRUGS (3)
  1. TRAMAL [Suspect]
     Active Substance: TRAMADOL
     Indication: CANCER PAIN
     Dosage: DISPERSIBLE TABLETS
     Route: 048
  2. CETUXIMAB. [Suspect]
     Active Substance: CETUXIMAB
     Indication: HYPOPHARYNGEAL CANCER
     Route: 048
  3. TRAMAL [Suspect]
     Active Substance: TRAMADOL
     Indication: HYPOPHARYNGEAL CANCER
     Dosage: DISPERSIBLE TABLETS
     Route: 048

REACTIONS (1)
  - Neutrophil count decreased [Unknown]
